FAERS Safety Report 6190809-9 (Version None)
Quarter: 2009Q2

REPORT INFORMATION
  Report Type: 
  Country: None (occurrence: None)
  Receive Date: 20090514
  Receipt Date: 20090507
  Transmission Date: 20091009
  Serious: Yes (Other)
  Sender: FDA-Public Use
  Company Number: PHEH2008US09448

PATIENT
  Sex: Female

DRUGS (6)
  1. ZOMETA [Suspect]
  2. AREDIA [Suspect]
  3. CHEMOTHERAPEUTICS NOS [Concomitant]
  4. HERCEPTIN [Concomitant]
  5. STEROIDS NOS [Concomitant]
  6. PREVACID [Concomitant]

REACTIONS (9)
  - ANXIETY [None]
  - EMOTIONAL DISTRESS [None]
  - INFECTION [None]
  - INJURY [None]
  - OSTEONECROSIS [None]
  - PAIN [None]
  - PHYSICAL DISABILITY [None]
  - SCAR [None]
  - TOOTHACHE [None]
